FAERS Safety Report 7396742-9 (Version None)
Quarter: 2011Q1

REPORT INFORMATION
  Report Type: 
  Country: None (occurrence: None)
  Receive Date: 20110325
  Receipt Date: 20110321
  Transmission Date: 20110831
  Serious: Yes (Life-Threatening)
  Sender: FDA-Public Use
  Company Number: 2011SP012699

PATIENT
  Age: 72 Year
  Sex: Male

DRUGS (1)
  1. DULERA TABLET [Suspect]
     Indication: ASTHMA
     Dosage: BID

REACTIONS (1)
  - ANAPHYLACTIC SHOCK [None]
